FAERS Safety Report 4518630-5 (Version None)
Quarter: 2004Q4

REPORT INFORMATION
  Report Type: 
  Country: None (occurrence: None)
  Receive Date: 20041104
  Receipt Date: 20031105
  Transmission Date: 20050328
  Serious: Yes (Hospitalization)
  Sender: FDA-Public Use
  Company Number: US_021189554

PATIENT
  Age: 49 Year
  Sex: Female
  Weight: 141 kg

DRUGS (8)
  1. HUMULIN N [Suspect]
     Indication: DIABETES MELLITUS
  2. HUMALOG [Suspect]
     Indication: DIABETES MELLITUS
  3. VANCOMYCIN [Suspect]
     Dates: start: 20021001, end: 20021001
  4. HUMULIN L [Suspect]
     Indication: DIABETES MELLITUS
     Dates: start: 19780101, end: 19810101
  5. HUMULIN R [Suspect]
     Indication: DIABETES MELLITUS
     Dates: end: 19810101
  6. AVANDIA [Concomitant]
  7. ACTOS [Concomitant]
  8. CEFTAZIDIME [Concomitant]

REACTIONS (9)
  - ABORTION SPONTANEOUS [None]
  - BLOOD GLUCOSE DECREASED [None]
  - BLOOD GLUCOSE INCREASED [None]
  - INSULIN RESISTANCE [None]
  - PSEUDOMONAS INFECTION [None]
  - PYREXIA [None]
  - STAPHYLOCOCCAL INFECTION [None]
  - SURGERY [None]
  - WEIGHT DECREASED [None]
